FAERS Safety Report 7857932-1 (Version None)
Quarter: 2011Q4

REPORT INFORMATION
  Report Type: 
  Country: None (occurrence: None)
  Receive Date: 20111027
  Receipt Date: 20110302
  Transmission Date: 20120403
  Serious: Yes (Other)
  Sender: FDA-Public Use
  Company Number: US-BAYER-2011-020245

PATIENT
  Sex: Male
  Weight: 64 kg

DRUGS (5)
  1. HYDROCODONE BITARTRATE [Concomitant]
  2. ALEVE (CAPLET) [Suspect]
     Dosage: 2 DF, QD
     Route: 048
  3. HYDROCHLOROTHIAZIDE [Concomitant]
  4. OXYGEN [Concomitant]
  5. ALPRAZOLAM [Concomitant]
     Dosage: 0.5 MG, UNK

REACTIONS (1)
  - BLOOD URINE PRESENT [None]
